FAERS Safety Report 6071868-0 (Version None)
Quarter: 2009Q1

REPORT INFORMATION
  Report Type: 
  Country: None (occurrence: None)
  Receive Date: 20090210
  Receipt Date: 20090129
  Transmission Date: 20090719
  Serious: Yes (Other)
  Sender: FDA-Public Use
  Company Number: US-BAYER-200912185NA

PATIENT
  Age: 23 Year
  Sex: Female

DRUGS (1)
  1. MIRENA [Suspect]
     Indication: CONTRACEPTION
     Route: 015
     Dates: start: 20060224, end: 20090125

REACTIONS (7)
  - ADNEXA UTERI PAIN [None]
  - AMENORRHOEA [None]
  - ECTOPIC PREGNANCY WITH INTRAUTERINE DEVICE [None]
  - GENITAL HAEMORRHAGE [None]
  - INTRA-ABDOMINAL HAEMORRHAGE [None]
  - PROCEDURAL PAIN [None]
  - VAGINAL HAEMORRHAGE [None]
